FAERS Safety Report 4491264-7 (Version None)
Quarter: 2004Q4

REPORT INFORMATION
  Report Type: 
  Country: None (occurrence: None)
  Receive Date: 20041101
  Receipt Date: 20041028
  Transmission Date: 20050328
  Serious: Yes (Other)
  Sender: FDA-Public Use
  Company Number: 002345

PATIENT
  Age: 25 Year
  Sex: Female
  Weight: 68 kg

DRUGS (3)
  1. CLARAVIS [Suspect]
     Indication: ACNE
     Dosage: 40.00 MG, QD, ORAL
     Route: 048
     Dates: start: 20040726, end: 20040810
  2. PREDNISONE [Concomitant]
  3. ORAL CONTRACEPTIVE NOS (ORAL CONTRACEPTIVE NOS) [Concomitant]

REACTIONS (4)
  - ABORTION INDUCED [None]
  - DRUG EXPOSURE DURING PREGNANCY [None]
  - TREATMENT NONCOMPLIANCE [None]
  - UNINTENDED PREGNANCY [None]
